FAERS Safety Report 6068579-4 (Version None)
Quarter: 2009Q1

REPORT INFORMATION
  Report Type: 
  Country: None (occurrence: None)
  Receive Date: 20090206
  Receipt Date: 20081215
  Transmission Date: 20090719
  Serious: Yes (Hospitalization)
  Sender: FDA-Public Use
  Company Number: CA-PFIZER INC-2008156428

PATIENT

DRUGS (14)
  1. BLINDED *PLACEBO [Suspect]
     Indication: RENAL CELL CARCINOMA
     Dosage: UNK
     Route: 048
     Dates: start: 20081024
  2. BLINDED *SORAFENIB [Suspect]
     Indication: RENAL CELL CARCINOMA
     Dosage: UNK
     Route: 048
     Dates: start: 20081024
  3. BLINDED SUNITINIB MALATE [Suspect]
     Indication: RENAL CELL CARCINOMA
     Dosage: UNK
     Route: 048
     Dates: start: 20081024
  4. ATIVAN [Concomitant]
     Dosage: 0.5 MG, 3X/DAY AS NECESSARY
  5. BENADRYL [Concomitant]
     Dosage: 50 MG, UNK
     Route: 042
     Dates: start: 20081105
  6. BENADRYL [Concomitant]
     Dosage: 50 MG, 3X/DAY
     Route: 048
  7. DECADRON [Concomitant]
     Dosage: UNK
     Dates: start: 20081106
  8. DEXAMETHASONE [Concomitant]
     Dosage: 20 MG, UNK
     Route: 042
     Dates: start: 20081105
  9. PREDNISONE [Concomitant]
     Dosage: 50 MG, UNK
     Dates: start: 20081104, end: 20081106
  10. PROZAC [Concomitant]
  11. RANITIDINE HYDROCHLORIDE [Concomitant]
     Dosage: 50 MG, UNK
     Route: 042
     Dates: start: 20081105
  12. CALCIUM [Concomitant]
  13. GLUCOSAMINE [Concomitant]
  14. VITAMIN D [Concomitant]

REACTIONS (1)
  - ERYTHEMA MULTIFORME [None]
